FAERS Safety Report 9494395 (Version 3)
Quarter: 2013Q4

REPORT INFORMATION
  Report Type: Spontaneous
  Country: JP (occurrence: JP)
  Receive Date: 20130903
  Receipt Date: 20131108
  Transmission Date: 20140711
  Serious: Yes (Life-Threatening, Hospitalization)
  Sender: FDA-Public Use
  Company Number: JP-EISAI INC-E3810-06536-SPO-JP

PATIENT
  Age: 61 Year
  Sex: Male

DRUGS (13)
  1. ACIPHEX (RABEPRAZOLE) [Suspect]
     Indication: HELICOBACTER GASTRITIS
     Route: 048
     Dates: start: 20130625, end: 20130703
  2. ACIPHEX (RABEPRAZOLE) [Suspect]
     Route: 048
     Dates: start: 20130618, end: 20130624
  3. NORVASC [Concomitant]
     Route: 048
  4. LASIX [Concomitant]
     Route: 048
  5. SAWACILLIN [Concomitant]
     Indication: HELICOBACTER INFECTION
     Route: 048
  6. CLARITH [Concomitant]
     Indication: HELICOBACTER INFECTION
     Route: 048
  7. URSO [Concomitant]
     Route: 048
  8. DIOVAN [Concomitant]
     Route: 048
  9. ALFAROL [Concomitant]
     Route: 048
  10. KALIMATE [Concomitant]
     Dosage: UNKNOWN
     Route: 048
  11. LOBU [Concomitant]
     Route: 048
  12. TRAVATANZ [Concomitant]
     Dosage: UNKNOWN
     Route: 065
  13. ISOPROPYL [Concomitant]
     Dosage: UNKNOWN
     Route: 065

REACTIONS (2)
  - Septic shock [Recovered/Resolved]
  - Granulocytopenia [Recovered/Resolved]
